FAERS Safety Report 24149225 (Version 2)
Quarter: 2024Q3

REPORT INFORMATION
  Report Type: Spontaneous
  Country: US (occurrence: US)
  Receive Date: 20240729
  Receipt Date: 20240809
  Transmission Date: 20241017
  Serious: Yes (Death)
  Sender: TEVA
  Company Number: US-TEVA-VS-3223341

PATIENT
  Age: 89 Year
  Sex: Male

DRUGS (1)
  1. ROMIDEPSIN [Suspect]
     Active Substance: ROMIDEPSIN
     Indication: Cutaneous T-cell lymphoma
     Route: 065

REACTIONS (1)
  - Drug ineffective [Fatal]
